FAERS Safety Report 5892757-8 (Version None)
Quarter: 2008Q3

REPORT INFORMATION
  Report Type: 
  Country: None (occurrence: None)
  Receive Date: 20080919
  Receipt Date: 20080919
  Transmission Date: 20090109
  Serious: Yes (Hospitalization)
  Sender: FDA-Public Use
  Company Number: None

PATIENT
  Age: 26 Year
  Sex: Male
  Weight: 112.0385 kg

DRUGS (2)
  1. XOPENEX HFA [Suspect]
     Indication: ASTHMA
     Dosage: 90 MCG 2 PUFF 4 TIMES DAY INHAL
     Route: 055
  2. PROAIR HFA [Suspect]
     Indication: ASTHMA
     Dosage: 90MCG 2 PUFF 4 TIMES DAY INHAL
     Route: 055

REACTIONS (2)
  - DRUG EFFECT DECREASED [None]
  - FEAR [None]
